FAERS Safety Report 5734082-1 (Version None)
Quarter: 2008Q2

REPORT INFORMATION
  Report Type: 
  Country: None (occurrence: None)
  Receive Date: 20080509
  Receipt Date: 20080502
  Transmission Date: 20081010
  Serious: Yes (Hospitalization, Other)
  Sender: FDA-Public Use
  Company Number: US-PFIZER INC-2008038681

PATIENT
  Age: 62 Year
  Sex: Male

DRUGS (9)
  1. NORVASC [Suspect]
  2. PERCOCET [Concomitant]
  3. NYSTATIN [Concomitant]
  4. METOPROLOL TARTRATE [Concomitant]
  5. NEXIUM [Concomitant]
  6. ASPIRIN [Concomitant]
  7. ZOFRAN [Concomitant]
  8. TYLENOL [Concomitant]
  9. GUAIFENESIN DM [Concomitant]

REACTIONS (4)
  - HERNIA [None]
  - INFECTION [None]
  - LEUKOPENIA [None]
  - PLATELET COUNT DECREASED [None]
